FAERS Safety Report 8055402-1 (Version None)
Quarter: 2012Q1

REPORT INFORMATION
  Report Type: 
  Country: None (occurrence: None)
  Receive Date: 20120119
  Receipt Date: 20120111
  Transmission Date: 20120608
  Serious: Yes (Other)
  Sender: FDA-Public Use
  Company Number: PHEH2011US06666

PATIENT
  Sex: Male
  Weight: 19.5 kg

DRUGS (2)
  1. EXJADE [Suspect]
     Indication: IRON OVERLOAD
     Dosage: 375 MG, DAILY
     Route: 048
     Dates: start: 20110518, end: 20110613
  2. EXJADE [Suspect]
     Indication: IRON METABOLISM DISORDER
     Dosage: 375 MG, QD
     Route: 048

REACTIONS (3)
  - NEUTROPENIA [None]
  - PANCYTOPENIA [None]
  - ACUTE MYELOID LEUKAEMIA [None]
